FAERS Safety Report 19751334 (Version 1)
Quarter: 2021Q3

REPORT INFORMATION
  Report Type: Spontaneous
  Country: JP (occurrence: JP)
  Receive Date: 20210826
  Receipt Date: 20210826
  Transmission Date: 20211014
  Serious: Yes (Other)
  Sender: FDA-Public Use
  Company Number: JP-REGENERON PHARMACEUTICALS, INC.-2021-79604

PATIENT

DRUGS (5)
  1. BENOXIL [Concomitant]
     Active Substance: BENOXINATE HYDROCHLORIDE
     Indication: PRODUCT USED FOR UNKNOWN INDICATION
     Dosage: A FEW DROPS PER DAY, ON THE DAY OF INTRAVITREAL INJECTION (BEFORE INJECTION), LEFT EYE
     Route: 047
  2. GATIFLO [Concomitant]
     Active Substance: GATIFLOXACIN
     Indication: PRODUCT USED FOR UNKNOWN INDICATION
     Dosage: 4 TIMES A DAY, 1 TIMES A FEW DROPS, ON THE DAY OF INTRAVITREAL INJECTION (BETWEEN 3 DAYS BEFORE AND
     Route: 047
  3. XYLOCAINE [Concomitant]
     Active Substance: LIDOCAINE HYDROCHLORIDE
     Indication: PRODUCT USED FOR UNKNOWN INDICATION
     Dosage: A FEW DROPS PER DAY, INJECT INTO THE BODY OF THE GLASS, STRAIGHT AHEAD, LEFT EYE
     Route: 047
  4. POVIDONE?IODINE. [Concomitant]
     Active Substance: POVIDONE-IODINE
     Indication: PRODUCT USED FOR UNKNOWN INDICATION
     Dosage: A FEW DROPS PER DAY, ON THE DAY OF INTRAVITREAL INJECTION (BEFORE AND AFTER INJECTION), LEFT EYE
     Route: 047
  5. EYLEA [Suspect]
     Active Substance: AFLIBERCEPT
     Indication: AGE-RELATED MACULAR DEGENERATION
     Dosage: 0.05 ML, ONCE
     Route: 031
     Dates: start: 20210112, end: 20210112

REACTIONS (4)
  - Chest pain [Unknown]
  - Decreased appetite [Recovered/Resolved]
  - Arteriosclerosis [Unknown]
  - Nausea [Recovered/Resolved]

NARRATIVE: CASE EVENT DATE: 202101
